FAERS Safety Report 7742635-4 (Version None)
Quarter: 2011Q3

REPORT INFORMATION
  Report Type: 
  Country: None (occurrence: None)
  Receive Date: 20110830
  Receipt Date: 20110819
  Transmission Date: 20111222
  Serious: Yes (Hospitalization, Other)
  Sender: FDA-Public Use
  Company Number: 2011SP039824

PATIENT
  Sex: Male

DRUGS (2)
  1. RIBAVIRIN [Suspect]
     Indication: HEPATITIS C
     Dates: start: 20110813
  2. PEG-INTRON [Suspect]
     Indication: HEPATITIS C
     Dates: start: 20110813

REACTIONS (3)
  - DEPRESSED LEVEL OF CONSCIOUSNESS [None]
  - AMMONIA INCREASED [None]
  - DIZZINESS [None]
